FAERS Safety Report 6813811-X (Version None)
Quarter: 2010Q3

REPORT INFORMATION
  Report Type: 
  Country: None (occurrence: None)
  Receive Date: 20100702
  Receipt Date: 20100622
  Transmission Date: 20110219
  Serious: Yes (Hospitalization)
  Sender: FDA-Public Use
  Company Number: US-BIOGENIDEC-2009BI034788

PATIENT
  Age: 9 Day
  Sex: Male

DRUGS (1)
  1. TYSABRI [Suspect]
     Indication: DRUG EXPOSURE DURING PREGNANCY
     Route: 064
     Dates: start: 20071025, end: 20080904

REACTIONS (3)
  - CAFE AU LAIT SPOTS [None]
  - MATERNAL DRUGS AFFECTING FOETUS [None]
  - SUPRAVENTRICULAR TACHYCARDIA [None]
